FAERS Safety Report 26183966 (Version 1)
Quarter: 2025Q4

REPORT INFORMATION
  Report Type: Spontaneous
  Country: US (occurrence: US)
  Receive Date: 20251222
  Receipt Date: 20251222
  Transmission Date: 20260117
  Serious: Yes (Other)
  Sender: MACLEODS
  Company Number: US-MLMSERVICE-20251204-PI739482-00200-1

PATIENT

DRUGS (3)
  1. LEVOTHYROXINE [Suspect]
     Active Substance: LEVOTHYROXINE
     Indication: Product used for unknown indication
     Route: 065
  2. LEVOTHYROXINE [Suspect]
     Active Substance: LEVOTHYROXINE
     Route: 065
  3. ELIQUIS [Concomitant]
     Active Substance: APIXABAN
     Indication: Product used for unknown indication
     Route: 065

REACTIONS (6)
  - Thyrotoxic crisis [Recovering/Resolving]
  - Encephalopathy [Recovering/Resolving]
  - Metabolic acidosis [Recovering/Resolving]
  - Normocytic anaemia [Recovering/Resolving]
  - Cardiac failure [Recovering/Resolving]
  - Incorrect dose administered [Recovering/Resolving]
